FAERS Safety Report 6239005-7 (Version None)
Quarter: 2009Q2

REPORT INFORMATION
  Report Type: 
  Country: None (occurrence: None)
  Receive Date: 20090622
  Receipt Date: 20090616
  Transmission Date: 20091009
  Serious: Yes (Hospitalization)
  Sender: FDA-Public Use
  Company Number: B0577966A

PATIENT
  Sex: Female

DRUGS (3)
  1. SERETIDE [Suspect]
     Indication: ASTHMA
     Dosage: 500MCG TWICE PER DAY
     Route: 055
     Dates: start: 20080704
  2. SPIRIVA [Concomitant]
     Indication: ASTHMA
     Route: 055
     Dates: start: 20080905
  3. MEPTIN AIR [Concomitant]
     Indication: ASTHMA
     Route: 055

REACTIONS (1)
  - ASTHMA [None]
